FAERS Safety Report 8220565-1 (Version None)
Quarter: 2012Q1

REPORT INFORMATION
  Report Type: 
  Country: None (occurrence: None)
  Receive Date: 20120320
  Receipt Date: 20120314
  Transmission Date: 20120608
  Serious: Yes (Hospitalization)
  Sender: FDA-Public Use
  Company Number: US-AMGEN-USASP2012004399

PATIENT
  Age: 42 Year
  Sex: Female
  Weight: 48.98 kg

DRUGS (1)
  1. ENBREL [Suspect]
     Indication: RHEUMATOID ARTHRITIS
     Dosage: 50 MG, QWK
     Route: 058
     Dates: start: 20030730

REACTIONS (4)
  - CONSTIPATION [None]
  - COLON CANCER [None]
  - INCISION SITE PAIN [None]
  - UTERINE LEIOMYOMA [None]
